FAERS Safety Report 15559872 (Version 3)
Quarter: 2020Q2

REPORT INFORMATION
  Report Type: Report from Study
  Country: BR (occurrence: BR)
  Receive Date: 20181029
  Receipt Date: 20200403
  Transmission Date: 20200713
  Serious: Yes (Other)
  Sender: FDA-Public Use
  Company Number: BR-EMD SERONO-E2B_90044733

PATIENT
  Sex: Female

DRUGS (4)
  1. REBIF [Suspect]
     Active Substance: INTERFERON BETA-1A
     Indication: MULTIPLE SCLEROSIS
     Route: 058
     Dates: start: 20170703
  2. GABAPENTINA [Suspect]
     Active Substance: GABAPENTIN
     Indication: PRODUCT USED FOR UNKNOWN INDICATION
  3. BENZETACIL                         /00000904/ [Suspect]
     Active Substance: PENICILLIN G BENZATHINE
     Indication: PRODUCT USED FOR UNKNOWN INDICATION
  4. FLUCONAZOL [Suspect]
     Active Substance: FLUCONAZOLE
     Indication: PRODUCT USED FOR UNKNOWN INDICATION

REACTIONS (17)
  - Aspartate aminotransferase increased [Recovered/Resolved]
  - Tonsillitis [Not Recovered/Not Resolved]
  - Dysphagia [Unknown]
  - Treatment noncompliance [Unknown]
  - Hepatic steatosis [Recovered/Resolved]
  - Pneumonia [Recovered/Resolved]
  - Choking [Unknown]
  - Anxiety [Recovering/Resolving]
  - Decreased immune responsiveness [Not Recovered/Not Resolved]
  - Depression [Recovering/Resolving]
  - Diabetes mellitus inadequate control [Recovered/Resolved]
  - Rhinitis [Not Recovered/Not Resolved]
  - Product availability issue [Unknown]
  - Blood cholesterol increased [Recovered/Resolved]
  - Labyrinthitis [Recovering/Resolving]
  - Alanine aminotransferase increased [Recovered/Resolved]
  - Blindness [Unknown]

NARRATIVE: CASE EVENT DATE: 2018
